FAERS Safety Report 7790961-5 (Version None)
Quarter: 2011Q4

REPORT INFORMATION
  Report Type: 
  Country: None (occurrence: None)
  Receive Date: 20111002
  Receipt Date: 20110927
  Transmission Date: 20120403
  Serious: Yes (Death)
  Sender: FDA-Public Use
  Company Number: PHEH2011US04978

PATIENT
  Sex: Male

DRUGS (2)
  1. TOBI [Suspect]
     Indication: MULTIPLE SCLEROSIS
     Dosage: 1 VIAL VIA NEBULIZER TWICE A DAY FOR 3 DAYS PER WEEK AND 1 WEEK OFF
  2. AVONEX [Concomitant]

REACTIONS (1)
  - DEATH [None]
